FAERS Safety Report 4491784-5 (Version None)
Quarter: 2004Q4

REPORT INFORMATION
  Report Type: 
  Country: None (occurrence: None)
  Receive Date: 20041029
  Receipt Date: 20041001
  Transmission Date: 20050328
  Serious: Yes (Hospitalization)
  Sender: FDA-Public Use
  Company Number: 04-0079 PO

PATIENT
  Age: 24 Year
  Sex: Male

DRUGS (2)
  1. PONSTAL         (MEFANAMIC ACID)    PONSTAL [Suspect]
     Indication: INFLAMMATION
     Dosage: 1000MG/BID/PO
     Route: 048
     Dates: start: 20040910, end: 20040911
  2. VOLTAREN [Suspect]
     Indication: PAIN
     Dosage: 100MG/BID/PO
     Route: 048
     Dates: start: 20040906, end: 20040909

REACTIONS (5)
  - ANAEMIA [None]
  - COLITIS [None]
  - HAEMATOCHEZIA [None]
  - LARGE INTESTINAL ULCER [None]
  - LOSS OF CONSCIOUSNESS [None]
